FAERS Safety Report 18428756 (Version 3)
Quarter: 2020Q4

REPORT INFORMATION
  Report Type: Spontaneous
  Country: NL (occurrence: NL)
  Receive Date: 20201027
  Receipt Date: 20201120
  Transmission Date: 20210114
  Serious: No
  Sender: FDA-Public Use
  Company Number: NL-ROCHE-2700869

PATIENT
  Age: 35 Year
  Sex: Female

DRUGS (3)
  1. OCREVUS [Suspect]
     Active Substance: OCRELIZUMAB
     Indication: RELAPSING-REMITTING MULTIPLE SCLEROSIS
     Route: 042
     Dates: start: 20191223
  2. OCREVUS [Suspect]
     Active Substance: OCRELIZUMAB
     Dosage: 13/JAN/2020 (300 MG)
     Route: 042
     Dates: start: 20200803
  3. BLOOD TRANSFUSION [Concomitant]
     Active Substance: HUMAN RED BLOOD CELL
     Indication: IMMUNODEFICIENCY

REACTIONS (20)
  - Influenza [Not Recovered/Not Resolved]
  - B-lymphocyte count decreased [Not Recovered/Not Resolved]
  - Incorrect drug administration rate [Unknown]
  - Hypertension [Recovered/Resolved]
  - Speech disorder [Unknown]
  - Asthma [Not Recovered/Not Resolved]
  - Oropharyngeal pain [Not Recovered/Not Resolved]
  - Heart rate increased [Recovered/Resolved]
  - Pyrexia [Unknown]
  - Respiratory tract infection [Not Recovered/Not Resolved]
  - Respiratory rate increased [Not Recovered/Not Resolved]
  - Skin ulcer [Not Recovered/Not Resolved]
  - Nail disorder [Unknown]
  - Onycholysis [Unknown]
  - T-lymphocyte count decreased [Not Recovered/Not Resolved]
  - Blister [Not Recovered/Not Resolved]
  - Hypersensitivity [Unknown]
  - Stress [Unknown]
  - Hypoglobulinaemia [Unknown]
  - Lymphopenia [Not Recovered/Not Resolved]

NARRATIVE: CASE EVENT DATE: 20200120
